FAERS Safety Report 13313870 (Version 10)
Quarter: 2018Q1

REPORT INFORMATION
  Report Type: Report from Study
  Country: CZ (occurrence: CZ)
  Receive Date: 20170309
  Receipt Date: 20180110
  Transmission Date: 20180508
  Serious: Yes (Hospitalization, Other)
  Sender: FDA-Public Use
  Company Number: CZ-EISAI MEDICAL RESEARCH-EC-2017-025498

PATIENT
  Age: 36 Year
  Sex: Male
  Weight: 98 kg

DRUGS (10)
  1. FYCOMPA [Suspect]
     Active Substance: PERAMPANEL
     Route: 048
     Dates: start: 20161208, end: 20161221
  2. FYCOMPA [Suspect]
     Active Substance: PERAMPANEL
     Route: 048
     Dates: start: 20161222, end: 20170228
  3. FYCOMPA [Suspect]
     Active Substance: PERAMPANEL
     Indication: EPILEPSY
     Route: 048
     Dates: start: 20161207, end: 20161207
  4. LAMICTAL [Concomitant]
     Active Substance: LAMOTRIGINE
  5. RIVOTRIL [Concomitant]
     Active Substance: CLONAZEPAM
  6. MAGNESIUM LACTATE [Concomitant]
     Active Substance: MAGNESIUM LACTATE
  7. PYRIDOXINE [Concomitant]
     Active Substance: PYRIDOXINE
  8. FYCOMPA [Suspect]
     Active Substance: PERAMPANEL
     Route: 048
     Dates: start: 20170301, end: 20170301
  9. TEGRETOL [Concomitant]
     Active Substance: CARBAMAZEPINE
  10. KEPPRA [Concomitant]
     Active Substance: LEVETIRACETAM

REACTIONS (3)
  - Partial seizures [Recovered/Resolved]
  - Accidental overdose [Recovered/Resolved]
  - Irritability [Recovered/Resolved]

NARRATIVE: CASE EVENT DATE: 20161208
